FAERS Safety Report 22643045 (Version 2)
Quarter: 2023Q2

REPORT INFORMATION
  Report Type: Spontaneous
  Country: US (occurrence: US)
  Receive Date: 20230627
  Receipt Date: 20230627
  Transmission Date: 20230721
  Serious: No
  Sender: FDA-Public Use
  Company Number: US-ALCON LABORATORIES-ALC2022US003300

PATIENT

DRUGS (1)
  1. PATADAY ONCE DAILY RELIEF [Interacting]
     Active Substance: OLOPATADINE HYDROCHLORIDE
     Indication: Product used for unknown indication
     Dosage: 1 DROP IN EACH EYE
     Route: 047
     Dates: start: 20220708

REACTIONS (5)
  - Eye inflammation [Unknown]
  - Eye colour change [Unknown]
  - Eye swelling [Not Recovered/Not Resolved]
  - Eye irritation [Unknown]
  - Eye discharge [Unknown]

NARRATIVE: CASE EVENT DATE: 20220708
